FAERS Safety Report 12066802 (Version 3)
Quarter: 2016Q2

REPORT INFORMATION
  Report Type: Report from Study
  Country: CO (occurrence: CO)
  Receive Date: 20160211
  Receipt Date: 20160427
  Transmission Date: 20160815
  Serious: Yes (Hospitalization)
  Sender: FDA-Public Use
  Company Number: PHHY2016CO018137

PATIENT
  Age: 6 Year
  Sex: Female
  Weight: 12 kg

DRUGS (3)
  1. FOLIC ACID. [Concomitant]
     Active Substance: FOLIC ACID
     Indication: ANAEMIA
     Dosage: 500 MG, QD
     Route: 065
     Dates: start: 201510
  2. EXJADE [Suspect]
     Active Substance: DEFERASIROX
     Dosage: 500 MG (30 MG/KG), QD
     Route: 048
     Dates: start: 20151027, end: 201511
  3. EXJADE [Suspect]
     Active Substance: DEFERASIROX
     Indication: THALASSAEMIA BETA
     Dosage: 250 MG (15 MG/KG), QD
     Route: 048

REACTIONS (6)
  - Eating disorder [Unknown]
  - Pain in extremity [Unknown]
  - Haemoglobin decreased [Unknown]
  - General physical health deterioration [Unknown]
  - Hypersomnia [Unknown]
  - Headache [Unknown]

NARRATIVE: CASE EVENT DATE: 20160404
